FAERS Safety Report 6997662-1 (Version None)
Quarter: 2010Q3

REPORT INFORMATION
  Report Type: 
  Country: None (occurrence: None)
  Receive Date: 20100918
  Receipt Date: 20091110
  Transmission Date: 20110219
  Serious: No
  Sender: FDA-Public Use
  Company Number: US-WYE-H12141309

PATIENT
  Sex: Male
  Weight: 86.26 kg

DRUGS (2)
  1. PRISTIQ [Suspect]
     Indication: DEPRESSION
     Route: 048
     Dates: start: 20091106
  2. VYVANSE [Concomitant]

REACTIONS (8)
  - APATHY [None]
  - ASTHENIA [None]
  - DECREASED APPETITE [None]
  - DIPLOPIA [None]
  - FEELING ABNORMAL [None]
  - HYPERHIDROSIS [None]
  - MIDDLE INSOMNIA [None]
  - VISION BLURRED [None]
